FAERS Safety Report 23546121 (Version 2)
Quarter: 2024Q3

REPORT INFORMATION
  Report Type: Report from Study
  Country: CA (occurrence: CA)
  Receive Date: 20240220
  Receipt Date: 20240806
  Transmission Date: 20241017
  Serious: Yes (Other)
  Sender: EISAI
  Company Number: CA-Eisai-EC-2024-159598

PATIENT
  Age: 70 Year
  Sex: Female

DRUGS (2)
  1. LENVATINIB [Suspect]
     Active Substance: LENVATINIB
     Indication: Endometrial cancer
     Dosage: DOSE AND FREQUENCY NOT PROVIDED
     Route: 048
  2. PEMBROLIZUMAB [Suspect]
     Active Substance: PEMBROLIZUMAB
     Indication: Endometrial cancer
     Route: 041
     Dates: start: 20230726

REACTIONS (16)
  - Fatigue [Unknown]
  - Arthralgia [Not Recovered/Not Resolved]
  - Blood thyroid stimulating hormone increased [Unknown]
  - Cerebral venous thrombosis [Unknown]
  - Computerised tomogram head abnormal [Not Recovered/Not Resolved]
  - Decreased appetite [Not Recovered/Not Resolved]
  - Dry mouth [Not Recovered/Not Resolved]
  - Dysgeusia [Not Recovered/Not Resolved]
  - Dysphonia [Recovered/Resolved]
  - Food allergy [Not Recovered/Not Resolved]
  - Joint swelling [Recovered/Resolved with Sequelae]
  - Livedo reticularis [Not Recovered/Not Resolved]
  - Muscle tension dysphonia [Not Recovered/Not Resolved]
  - Oedema [Not Recovered/Not Resolved]
  - Pain [Not Recovered/Not Resolved]
  - Wound [Unknown]

NARRATIVE: CASE EVENT DATE: 20230816
